FAERS Safety Report 10303551 (Version 1)
Quarter: 2014Q3

REPORT INFORMATION
  Report Type: Spontaneous
  Country: US (occurrence: None)
  Receive Date: 20140710
  Receipt Date: 20140710
  Transmission Date: 20150326
  Serious: Yes (Hospitalization, Other)
  Sender: FDA-Public Use
  Company Number: 2014-US-008318

PATIENT
  Age: 40 Year
  Sex: Male

DRUGS (8)
  1. TRAZODONE [Concomitant]
     Active Substance: TRAZODONE HYDROCHLORIDE
  2. ARIMIDEX [Concomitant]
     Active Substance: ANASTROZOLE
  3. PRAZOSIN HCL (PRAZOSIN HYDROCHLORIDE) [Concomitant]
  4. THYROID PREPARATIONS (THYROID MEDICATION (DRUG NAME UNKNOWN) [Concomitant]
  5. VALIUM [Concomitant]
     Active Substance: DIAZEPAM
  6. XYREM [Suspect]
     Active Substance: SODIUM OXYBATE
     Indication: SLEEP DISORDER
     Route: 048
     Dates: start: 201208, end: 2013
  7. LAMICTAL [Suspect]
     Active Substance: LAMOTRIGINE
     Indication: CONVULSION
     Dates: start: 20140621
  8. ALL OTHER THERAPEUTIC PRODUCTS (LOW DOSE CHEMOTHERAPY (DRUG NAME UNKNOWN) [Concomitant]

REACTIONS (3)
  - Convulsion [None]
  - Anaphylactic reaction [None]
  - Stevens-Johnson syndrome [None]

NARRATIVE: CASE EVENT DATE: 201406
